FAERS Safety Report 8054700-5 (Version None)
Quarter: 2012Q1

REPORT INFORMATION
  Report Type: 
  Country: None (occurrence: None)
  Receive Date: 20120119
  Receipt Date: 20120117
  Transmission Date: 20120608
  Serious: Yes (Other)
  Sender: FDA-Public Use
  Company Number: US-PFIZER INC-2012010584

PATIENT
  Sex: Female

DRUGS (2)
  1. LIDOCAINE HYDROCHLORIDE [Suspect]
     Indication: ANAESTHESIA
     Dosage: 4 MG, UNK
     Route: 042
     Dates: start: 20120106, end: 20120106
  2. COLLAGENASE CLOSTRIDIUM HISTOLYTICUM [Suspect]
     Indication: DUPUYTREN'S CONTRACTURE
     Dosage: UNK, 1 IN 1 D
     Route: 026
     Dates: start: 20120105, end: 20120105

REACTIONS (2)
  - LACERATION [None]
  - BLOOD PRESSURE DECREASED [None]
